FAERS Safety Report 8925322 (Version 2)
Quarter: 2013Q1

REPORT INFORMATION
  Report Type: Spontaneous
  Country: US (occurrence: None)
  Receive Date: 20121116
  Receipt Date: 20121226
  Transmission Date: 20140127
  Serious: Yes (Other)
  Sender: FDA-Public Use
  Company Number: ADR-2012-02072

PATIENT
  Sex: Male

DRUGS (1)
  1. BACLOFEN INTRATHECAL [Suspect]
     Indication: MUSCLE SPASTICITY
     Dosage: /DAY

REACTIONS (5)
  - Asthenia [None]
  - Oropharyngeal discomfort [None]
  - Gait disturbance [None]
  - Muscle spasms [None]
  - Paralysis [None]
